FAERS Safety Report 4990778-0 (Version None)
Quarter: 2006Q2

REPORT INFORMATION
  Report Type: 
  Country: None (occurrence: None)
  Receive Date: 20060503
  Receipt Date: 20060427
  Transmission Date: 20061013
  Serious: Yes (Hospitalization)
  Sender: FDA-Public Use
  Company Number: US-BOEHRINGER INGELHEIM PHARMACEUTICALS, INC.-2006-BP-04833BP

PATIENT
  Sex: Female
  Weight: 65 kg

DRUGS (1)
  1. SPIRIVA [Suspect]
     Indication: CHRONIC OBSTRUCTIVE PULMONARY DISEASE
     Route: 055
     Dates: start: 20060220

REACTIONS (12)
  - BACK PAIN [None]
  - BRONCHIAL HYPERACTIVITY [None]
  - BRONCHITIS BACTERIAL [None]
  - CHRONIC OBSTRUCTIVE PULMONARY DISEASE [None]
  - CONDITION AGGRAVATED [None]
  - DRUG INEFFECTIVE [None]
  - FLANK PAIN [None]
  - HAEMATOCRIT DECREASED [None]
  - MEDICATION ERROR [None]
  - PNEUMONIA [None]
  - PSEUDOMONAS INFECTION [None]
  - SINUSITIS [None]
